FAERS Safety Report 10559676 (Version 1)
Quarter: 2014Q4

REPORT INFORMATION
  Report Type: Spontaneous
  Country: GB (occurrence: None)
  Receive Date: 20141030
  Receipt Date: 20141030
  Transmission Date: 20150529
  Serious: Yes (Hospitalization)
  Sender: FDA-Public Use
  Company Number: IMP_07973_2014

PATIENT
  Age: 44 Year
  Sex: Male

DRUGS (3)
  1. AMANTADINE [Concomitant]
     Active Substance: AMANTADINE
  2. CABERGOLINE. [Suspect]
     Active Substance: CABERGOLINE
     Indication: PARKINSON^S DISEASE
     Dosage: PER DAY
  3. LEVODOPA [Suspect]
     Active Substance: LEVODOPA
     Indication: PARKINSON^S DISEASE
     Dosage: DAY

REACTIONS (9)
  - Paranoia [None]
  - Hypersexuality [None]
  - Dopamine dysregulation syndrome [None]
  - Pathological gambling [None]
  - Gambling [None]
  - Intentional product misuse [None]
  - Persecutory delusion [None]
  - Drug dependence [None]
  - Jealous delusion [None]
